FAERS Safety Report 9295533 (Version 3)
Quarter: 2013Q3

REPORT INFORMATION
  Report Type: Spontaneous
  Country: US (occurrence: US)
  Receive Date: 20130517
  Receipt Date: 20130909
  Transmission Date: 20140515
  Serious: Yes (Congenital Anomaly, Other)
  Sender: FDA-Public Use
  Company Number: US-PFIZER INC-2013149435

PATIENT
  Sex: Female

DRUGS (8)
  1. ZOLOFT [Suspect]
     Indication: ANXIETY
     Dosage: 100 MG, 1X/DAY
     Route: 064
     Dates: start: 200202, end: 200203
  2. ZOLOFT [Suspect]
     Indication: DEPRESSION
     Dosage: 150 MG, 1X/DAY
     Route: 064
     Dates: start: 200203, end: 2010
  3. PRENATAL VITAMINS [Concomitant]
     Dosage: UNK
     Route: 064
     Dates: start: 1999, end: 2000
  4. PRENATAL VITAMINS [Concomitant]
     Dosage: UNK
     Route: 064
     Dates: start: 2003, end: 2004
  5. ALDOMET [Concomitant]
     Dosage: UNK
     Route: 064
  6. IRON (FE) [Concomitant]
     Dosage: UNK
     Route: 064
  7. WELLBUTRIN [Concomitant]
     Dosage: UNK
     Route: 064
  8. ADVIL [Concomitant]
     Dosage: UNK
     Route: 064
     Dates: start: 1998

REACTIONS (2)
  - Maternal exposure during pregnancy [Unknown]
  - Ventricular septal defect [Unknown]
